FAERS Safety Report 5680668-2 (Version None)
Quarter: 2008Q1

REPORT INFORMATION
  Report Type: 
  Country: None (occurrence: None)
  Receive Date: 20080326
  Receipt Date: 20070827
  Transmission Date: 20080703
  Serious: No
  Sender: FDA-Public Use
  Company Number: US-BAUSCH-2007BL003060

PATIENT
  Sex: Female

DRUGS (2)
  1. LOTEMAX [Suspect]
     Indication: CORNEAL SCAR
     Route: 047
     Dates: start: 20070825, end: 20070825
  2. LOTEMAX [Suspect]
     Indication: ABNORMAL SENSATION IN EYE
     Route: 047
     Dates: start: 20070825, end: 20070825

REACTIONS (6)
  - ANOSMIA [None]
  - FACIAL PAIN [None]
  - GINGIVAL PAIN [None]
  - NECK PAIN [None]
  - SWOLLEN TONGUE [None]
  - TOOTHACHE [None]
